FAERS Safety Report 25226781 (Version 2)
Quarter: 2025Q2

REPORT INFORMATION
  Report Type: Spontaneous
  Country: FR (occurrence: FR)
  Receive Date: 20250422
  Receipt Date: 20250424
  Transmission Date: 20250716
  Serious: Yes (Other)
  Sender: NOVARTIS
  Company Number: FR-ATNAHS-ATNAHS20250201841

PATIENT
  Age: 14 Year
  Sex: Female

DRUGS (20)
  1. CARBAMAZEPINE [Suspect]
     Active Substance: CARBAMAZEPINE
     Indication: Epilepsy
     Route: 065
  2. CARBAMAZEPINE [Suspect]
     Active Substance: CARBAMAZEPINE
     Route: 065
  3. CARBAMAZEPINE [Suspect]
     Active Substance: CARBAMAZEPINE
     Route: 065
  4. LAMOTRIGINE [Suspect]
     Active Substance: LAMOTRIGINE
     Indication: Seizure
     Route: 065
  5. DIAZEPAM [Suspect]
     Active Substance: DIAZEPAM
     Indication: Seizure
     Route: 065
  6. DIAZEPAM [Suspect]
     Active Substance: DIAZEPAM
     Dosage: 1 DOSAGE FORM, QD
     Route: 065
  7. CLOBAZAM [Suspect]
     Active Substance: CLOBAZAM
     Indication: Epilepsy
     Route: 065
     Dates: start: 1992
  8. CLOBAZAM [Suspect]
     Active Substance: CLOBAZAM
     Route: 065
  9. PHENOBARBITAL [Suspect]
     Active Substance: PHENOBARBITAL
     Indication: Epilepsy
     Route: 065
     Dates: start: 1992
  10. PHENOBARBITAL [Suspect]
     Active Substance: PHENOBARBITAL
     Dosage: 75 MG, QD (75 MG IN THE EVENING)
     Route: 065
  11. VALIUM [Suspect]
     Active Substance: DIAZEPAM
     Indication: Seizure
     Route: 065
  12. VALIUM [Suspect]
     Active Substance: DIAZEPAM
     Dosage: 1 DOSAGE FORM, QD, 1 TAB IN THE EVENING
     Route: 065
  13. VALPROATE SODIUM [Suspect]
     Active Substance: VALPROATE SODIUM
     Indication: Epilepsy
     Dosage: 1500 MG, QD, 1X/DAY
     Route: 065
  14. VALPROATE SODIUM [Suspect]
     Active Substance: VALPROATE SODIUM
     Dosage: 3 DOSAGE FORM, QD, 1X/DAY
     Route: 065
  15. VALPROATE SODIUM [Suspect]
     Active Substance: VALPROATE SODIUM
     Route: 065
     Dates: start: 199207
  16. VALPROATE SODIUM [Suspect]
     Active Substance: VALPROATE SODIUM
     Route: 065
  17. PHENOBARBITAL [Suspect]
     Active Substance: PHENOBARBITAL
     Indication: Seizure
     Route: 065
  18. PHENOBARBITAL [Suspect]
     Active Substance: PHENOBARBITAL
     Dosage: 2 DOSAGE FORM, QD, 2 TABLETS IN THE EVENING
     Route: 065
  19. SABRIL [Suspect]
     Active Substance: VIGABATRIN
     Indication: Seizure
     Route: 065
  20. LAMICTAL [Suspect]
     Active Substance: LAMOTRIGINE
     Indication: Seizure
     Route: 065

REACTIONS (2)
  - Seizure [Unknown]
  - Drug ineffective [Unknown]

NARRATIVE: CASE EVENT DATE: 19921206
